FAERS Safety Report 15556330 (Version 2)
Quarter: 2018Q4

REPORT INFORMATION
  Report Type: Report from Study
  Country: GB (occurrence: GB)
  Receive Date: 20181026
  Receipt Date: 20181029
  Transmission Date: 20190205
  Serious: Yes (Hospitalization)
  Sender: FDA-Public Use
  Company Number: PHHY2018GB138238

PATIENT
  Age: 41 Year
  Sex: Female
  Weight: 88.4 kg

DRUGS (2)
  1. TRAMETINIB [Suspect]
     Active Substance: TRAMETINIB
     Indication: OVARIAN EPITHELIAL CANCER
     Dosage: 2 MG, QD (TOTAL 12 MG)
     Route: 048
     Dates: start: 20180501, end: 20181008
  2. CGS 20267 [Suspect]
     Active Substance: LETROZOLE
     Indication: OVARIAN EPITHELIAL CANCER
     Dosage: UNK
     Route: 048
     Dates: start: 20170430, end: 20180430

REACTIONS (1)
  - Cellulitis [Recovered/Resolved with Sequelae]

NARRATIVE: CASE EVENT DATE: 20181008
